FAERS Safety Report 15403730 (Version 2)
Quarter: 2018Q4

REPORT INFORMATION
  Report Type: Spontaneous
  Country: DK (occurrence: FR)
  Receive Date: 20180919
  Receipt Date: 20180920
  Transmission Date: 20190204
  Serious: Yes (Death, Hospitalization)
  Sender: FDA-Public Use
  Company Number: FR-ALLERGAN-1000016239

PATIENT
  Age: 83 Year
  Sex: Male

DRUGS (10)
  1. TADENAN [Suspect]
     Active Substance: PYGEUM
     Indication: ANXIETY
     Dosage: 50 MG, BID
     Route: 048
     Dates: end: 20100111
  2. FUCIDINE (FUSIDIC ACID) [Concomitant]
     Active Substance: FUSIDIC ACID
     Indication: PRODUCT USED FOR UNKNOWN INDICATION
     Dosage: UNK
  3. KARDEGIC [Concomitant]
     Active Substance: ASPIRIN DL-LYSINE
     Indication: PRODUCT USED FOR UNKNOWN INDICATION
  4. DIFFU K [Suspect]
     Active Substance: POTASSIUM CHLORIDE
     Indication: PRODUCT USED FOR UNKNOWN INDICATION
     Dosage: 1 DF, QD
     Route: 048
     Dates: end: 20100111
  5. FRISIUM [Suspect]
     Active Substance: CLOBAZAM
     Indication: ANXIETY
     Dosage: 5 MG, QD
     Route: 048
     Dates: end: 20100111
  6. URBANYL [Suspect]
     Active Substance: CLOBAZAM
     Indication: DEPRESSION
     Dosage: 5 MG, QD
     Route: 048
     Dates: end: 20100111
  7. PREVISCAN (FLUINDIONE) [Suspect]
     Active Substance: FLUINDIONE
     Indication: CARDIOVASCULAR EVENT PROPHYLAXIS
     Dosage: 5 MG, QD
     Route: 048
     Dates: start: 20100106, end: 20100107
  8. ESCITALOPRAM OXALATE UNK [Suspect]
     Active Substance: ESCITALOPRAM OXALATE
     Indication: DEPRESSION
     Dosage: 10 MG, BID
     Route: 048
     Dates: end: 20100111
  9. ICAZ [Suspect]
     Active Substance: ISRADIPINE
     Indication: HYPERTENSION
     Dosage: 5 MG, QD
     Route: 048
  10. FLUINDIONE [Suspect]
     Active Substance: FLUINDIONE
     Indication: CARDIOVASCULAR EVENT PROPHYLAXIS
     Dosage: 5 MG, QD
     Dates: start: 20100106

REACTIONS (5)
  - Death [Fatal]
  - Melaena [Unknown]
  - Inappropriate schedule of product administration [Unknown]
  - Toxic skin eruption [Unknown]
  - Urticaria [Unknown]

NARRATIVE: CASE EVENT DATE: 20100106
